FAERS Safety Report 17685377 (Version 3)
Quarter: 2020Q2

REPORT INFORMATION
  Report Type: Spontaneous
  Country: US (occurrence: US)
  Receive Date: 20200420
  Receipt Date: 20200629
  Transmission Date: 20200714
  Serious: No
  Sender: FDA-Public Use
  Company Number: US-SA-2020SA101034

PATIENT

DRUGS (1)
  1. DUPIXENT [Suspect]
     Active Substance: DUPILUMAB
     Indication: ILL-DEFINED DISORDER
     Dosage: 300 MG, QOW
     Route: 058
     Dates: start: 20200115

REACTIONS (3)
  - Product use in unapproved indication [Unknown]
  - Urticaria [Recovering/Resolving]
  - Product dose omission [Unknown]

NARRATIVE: CASE EVENT DATE: 2020
